FAERS Safety Report 7255979-X (Version None)
Quarter: 2011Q1

REPORT INFORMATION
  Report Type: 
  Country: None (occurrence: None)
  Receive Date: 20110129
  Receipt Date: 20100601
  Transmission Date: 20110831
  Serious: No
  Sender: FDA-Public Use
  Company Number: US-ABBOTT-10P-163-0648606-00

PATIENT
  Age: 24 Year
  Sex: Male

DRUGS (4)
  1. HUMIRA [Suspect]
     Indication: CROHN'S DISEASE
     Dates: start: 20100323
  2. AMBIEN [Concomitant]
     Indication: INSOMNIA
  3. PREDNISONE [Concomitant]
     Indication: PRODUCT USED FOR UNKNOWN INDICATION
     Dosage: DOWN TO 20 MG DAILY
  4. ASACOL [Concomitant]
     Indication: CROHN'S DISEASE
     Dosage: 400MG 3PILLS TWICE DAILY

REACTIONS (3)
  - VOMITING [None]
  - HYPERHIDROSIS [None]
  - NAUSEA [None]
